FAERS Safety Report 9407350 (Version 1)
Quarter: 2013Q3

REPORT INFORMATION
  Report Type: Spontaneous
  Country: BR (occurrence: BR)
  Receive Date: 20130718
  Receipt Date: 20130718
  Transmission Date: 20140515
  Serious: Yes (Other)
  Sender: FDA-Public Use
  Company Number: BR-PFIZER INC-2013210127

PATIENT
  Age: 66 Year
  Sex: Female

DRUGS (1)
  1. LYRICA [Suspect]
     Indication: BACK PAIN
     Dosage: 75 MG, 2X/DAY (ONE CAPSULE, TWICE A DAY)
     Route: 048
     Dates: start: 20130508

REACTIONS (3)
  - Joint dislocation [Unknown]
  - Fall [Unknown]
  - Muscle spasms [Not Recovered/Not Resolved]
